FAERS Safety Report 7991621-8 (Version None)
Quarter: 2011Q4

REPORT INFORMATION
  Report Type: 
  Country: None (occurrence: None)
  Receive Date: 20111219
  Receipt Date: 20111117
  Transmission Date: 20120403
  Serious: No
  Sender: FDA-Public Use
  Company Number: US-ALLERGAN-1115108US

PATIENT
  Age: 72 Year
  Sex: Female

DRUGS (1)
  1. LUMIGAN [Suspect]
     Indication: PRODUCT USED FOR UNKNOWN INDICATION
     Dosage: UNK
     Route: 047
     Dates: start: 20101101

REACTIONS (3)
  - PHOTOPHOBIA [None]
  - ERYTHEMA OF EYELID [None]
  - IRIS DISORDER [None]
